FAERS Safety Report 4511296-X (Version None)
Quarter: 2004Q4

REPORT INFORMATION
  Report Type: 
  Country: None (occurrence: None)
  Receive Date: 20041122
  Receipt Date: 20041103
  Transmission Date: 20050328
  Serious: Yes (Death)
  Sender: FDA-Public Use
  Company Number: 12754727

PATIENT
  Sex: Male

DRUGS (16)
  1. NALTREXONE (NALTREXONE HCL) [Suspect]
     Indication: DRUG WITHDRAWAL SYNDROME
     Dosage: ORAL
     Route: 048
  2. DIAZEPAM [Suspect]
     Indication: DRUG WITHDRAWAL SYNDROME
     Dosage: 10 MILLIGRAM ORAL
     Route: 048
  3. HEMINEVRIN (CHLORMETHIAZOLE EDISYLATE) [Suspect]
     Indication: DRUG WITHDRAWAL SYNDROME
     Dosage: ORAL
     Route: 048
     Dates: start: 20010831
  4. OMEPRAZOLE [Suspect]
     Indication: DRUG WITHDRAWAL SYNDROME
     Dosage: 20 MILLIGRAM 1 DAY ORAL
     Route: 048
  5. CLONIDINE [Suspect]
     Indication: DRUG WITHDRAWAL SYNDROME
     Dosage: .1 MILLIGRAM ORAL
     Route: 048
  6. LORAZEPAM [Suspect]
     Indication: DRUG WITHDRAWAL SYNDROME
     Dosage: 2.5 MILLIGRAM ORAL
     Route: 048
  7. TEMAZEPAM [Suspect]
     Indication: DRUG WITHDRAWAL SYNDROME
     Dosage: 20 MILLIGRAM ORAL
     Route: 048
  8. ROHYPNOL (FLUNITRAZEPAM) [Suspect]
     Indication: DRUG WITHDRAWAL SYNDROME
     Dosage: 1 MILLIGRAM ORAL
     Route: 048
  9. CHLORPROMAZINE [Suspect]
     Indication: DRUG WITHDRAWAL SYNDROME
     Dosage: 50 MILLIGRAM ORAL
     Route: 048
  10. OCTREOTIDE ACETATE [Suspect]
     Indication: ANTIDIARRHOEAL SUPPORTIVE CARE
     Dosage: 100 MICROGRAM 1/12 HOUR SC
     Route: 058
  11. METOCLOPRAMIDE (METOCLOPRAMIDE HCL) [Suspect]
     Indication: DRUG WITHDRAWAL SYNDROME
     Dosage: 10 MILLIGRAM 1/8 HOUR SC
     Route: 058
  12. PROCHLORPERAZINE MALEATE [Suspect]
     Indication: DRUG WITHDRAWAL SYNDROME
     Dosage: ORAL
     Route: 048
  13. BUSCOPAN (HYOSCINE BUTYLBROMIDE) [Suspect]
     Indication: DRUG WITHDRAWAL SYNDROME
     Dosage: 10 MILLIGRAM ORAL
     Route: 048
  14. ACUPAN [Suspect]
     Indication: DRUG WITHDRAWAL SYNDROME
     Dosage: ORAL
     Route: 048
  15. DICLOFENAC SODIUM [Suspect]
     Indication: DRUG WITHDRAWAL SYNDROME
     Dosage: 25 MILLIGRAM 3/1 DAY ORAL
     Route: 048
  16. ZOFRAN [Suspect]
     Indication: DRUG WITHDRAWAL SYNDROME
     Dosage: 8 MILLIGRAM ORAL
     Route: 048

REACTIONS (1)
  - FOREIGN BODY ASPIRATION [None]
